FAERS Safety Report 9094338 (Version 1)
Quarter: 2013Q1

REPORT INFORMATION
  Report Type: Spontaneous
  Country: US (occurrence: None)
  Receive Date: 20130214
  Receipt Date: 20130214
  Transmission Date: 20140127
  Serious: Yes (Other)
  Sender: FDA-Public Use
  Company Number: None

PATIENT
  Age: 79 Year
  Sex: Male

DRUGS (1)
  1. ERIVEDGE 150MG GENENTECH [Suspect]
     Dosage: 150MG DAILY PO
     Route: 048
     Dates: start: 20120413

REACTIONS (1)
  - Tooth loss [None]
